FAERS Safety Report 21476655 (Version 1)
Quarter: 2022Q4

REPORT INFORMATION
  Report Type: Spontaneous
  Country: US (occurrence: None)
  Receive Date: 20221019
  Receipt Date: 20221019
  Transmission Date: 20230112
  Serious: No
  Sender: FDA-Public Use
  Company Number: US-ADAMAS Pharma-ADM202204-000749

PATIENT
  Age: 76 Year
  Sex: Male

DRUGS (3)
  1. GOCOVRI [Suspect]
     Active Substance: AMANTADINE
     Indication: Parkinson^s disease
     Route: 048
     Dates: start: 20220331
  2. GOCOVRI [Suspect]
     Active Substance: AMANTADINE
     Indication: Dyskinesia
     Route: 048
  3. CARBIDOPA\LEVODOPA [Concomitant]
     Active Substance: CARBIDOPA\LEVODOPA
     Dosage: EACH DF OF 25-100 MG

REACTIONS (3)
  - Arthralgia [Unknown]
  - Dizziness [Unknown]
  - Fall [Unknown]
